FAERS Safety Report 10239089 (Version 1)
Quarter: 2014Q2

REPORT INFORMATION
  Report Type: Spontaneous
  Country: NL (occurrence: NL)
  Receive Date: 20140616
  Receipt Date: 20140616
  Transmission Date: 20141212
  Serious: Yes (Other)
  Sender: FDA-Public Use
  Company Number: NL-PFIZER INC-2014162526

PATIENT
  Sex: 0

DRUGS (1)
  1. INSPRA [Suspect]
     Dosage: UNK

REACTIONS (1)
  - Pulmonary embolism [Unknown]
